FAERS Safety Report 12139861 (Version 1)
Quarter: 2016Q1

REPORT INFORMATION
  Report Type: Spontaneous
  Country: AE (occurrence: None)
  Receive Date: 20160302
  Receipt Date: 20160302
  Transmission Date: 20160526
  Serious: Yes (Hospitalization)
  Sender: FDA-Public Use
  Company Number: None

PATIENT
  Age: 42 Year
  Sex: Female
  Weight: 74 kg

DRUGS (1)
  1. ZOLADEX [Suspect]
     Active Substance: GOSERELIN ACETATE
     Indication: ENDOMETRIOSIS
     Dosage: ONCE EVERY MONTH FOR 6 MONTHS EVERY MONTH INJECTION ON STOMACH
     Dates: start: 20151024, end: 20160209

REACTIONS (4)
  - Dyspnoea [None]
  - Dizziness [None]
  - Headache [None]
  - Loss of consciousness [None]

NARRATIVE: CASE EVENT DATE: 20160226
